FAERS Safety Report 9253836 (Version 1)
Quarter: 2013Q2

REPORT INFORMATION
  Report Type: Spontaneous
  Country: GB (occurrence: GB)
  Receive Date: 20130425
  Receipt Date: 20130425
  Transmission Date: 20140414
  Serious: Yes (Other)
  Sender: FDA-Public Use
  Company Number: GB-JNJFOC-20130409723

PATIENT
  Sex: Female
  Weight: 67 kg

DRUGS (6)
  1. REMICADE [Suspect]
     Indication: CROHN^S DISEASE
     Route: 042
     Dates: start: 20130228, end: 20130314
  2. HYDROCORTISONE [Concomitant]
     Indication: PREMEDICATION
     Route: 042
     Dates: start: 20130228
  3. TRAMADOL [Concomitant]
     Route: 065
  4. PARACETAMOL [Concomitant]
     Route: 065
  5. BUDESONIDE [Concomitant]
     Route: 065
  6. CETIRIZINE [Concomitant]
     Route: 065

REACTIONS (2)
  - Arthritis [Recovered/Resolved]
  - Rash [Recovered/Resolved]
